FAERS Safety Report 18103584 (Version 4)
Quarter: 2020Q3

REPORT INFORMATION
  Report Type: Spontaneous
  Country: US (occurrence: US)
  Receive Date: 20200803
  Receipt Date: 20200826
  Transmission Date: 20201103
  Serious: No
  Sender: FDA-Public Use
  Company Number: US-PFIZER INC-2019095756

PATIENT
  Age: 80 Year
  Sex: Female
  Weight: 63.05 kg

DRUGS (2)
  1. VALIUM [Concomitant]
     Active Substance: DIAZEPAM
     Indication: ANXIETY
     Dosage: 2 MG, AS NEEDED (2MG; ONE TABLET BY MOUTH TWICE DAILY AS NEEDED)
     Route: 048
  2. RELPAX [Suspect]
     Active Substance: ELETRIPTAN HYDROBROMIDE
     Indication: MIGRAINE
     Dosage: 40 MG, AS NEEDED
     Route: 048

REACTIONS (5)
  - Stress [Unknown]
  - Illness [Unknown]
  - Headache [Unknown]
  - Weight decreased [Unknown]
  - Migraine [Unknown]
